FAERS Safety Report 13554396 (Version 1)
Quarter: 2017Q2

REPORT INFORMATION
  Report Type: Spontaneous
  Country: US (occurrence: US)
  Receive Date: 20170517
  Receipt Date: 20170517
  Transmission Date: 20170830
  Serious: Yes (Other)
  Sender: FDA-Public Use
  Company Number: None

PATIENT
  Age: 42 Year
  Sex: Male
  Weight: 88.45 kg

DRUGS (4)
  1. CHOLESTYRAMINE. [Concomitant]
     Active Substance: CHOLESTYRAMINE
  2. AMOXICILLIN TRIHYDRATE/POTASSIUM CLAVAULANATE [Suspect]
     Active Substance: AMOXICILLIN\CLAVULANATE POTASSIUM
     Indication: SINUSITIS
     Dosage: ?          QUANTITY:1 PILL;?
     Route: 048
     Dates: start: 20170220, end: 20170301
  3. URSODIOL. [Concomitant]
     Active Substance: URSODIOL
  4. PANTOPRAZOLE SOD DR [Concomitant]

REACTIONS (7)
  - Fatigue [None]
  - Nausea [None]
  - Weight decreased [None]
  - Impaired work ability [None]
  - Pruritus [None]
  - Loss of personal independence in daily activities [None]
  - Hepatic function abnormal [None]

NARRATIVE: CASE EVENT DATE: 20170314
